FAERS Safety Report 19093157 (Version 1)
Quarter: 2021Q2

REPORT INFORMATION
  Report Type: Spontaneous
  Country: DE (occurrence: DE)
  Receive Date: 20210405
  Receipt Date: 20210405
  Transmission Date: 20210717
  Serious: Yes (Hospitalization)
  Sender: FDA-Public Use
  Company Number: DE-TEVA-2021-DE-1897214

PATIENT
  Age: 77 Year
  Sex: Male

DRUGS (14)
  1. LANTAREL 7,5MG [Suspect]
     Active Substance: METHOTREXATE SODIUM
     Dosage: 7.5 MG / WEEK, 1X THURSDAY
  2. TORASEMID [Concomitant]
     Active Substance: TORSEMIDE
     Dosage: 10 MILLIGRAM DAILY;  1?0?0?0
  3. SYMBICORT 160MIKROGRAMM/4,5MIKROGRAMM PRO INHALATION [Concomitant]
     Dosage: 2 DOSAGE FORMS DAILY; 4.5|160 UG, 1?0?1?0
     Route: 055
  4. PREDNISOLON [Suspect]
     Active Substance: PREDNISOLONE
     Dosage: .5 DOSAGE FORMS DAILY; 10 MG, 0.5?0?0?0
  5. ESOMEPRAZOL [Concomitant]
     Active Substance: ESOMEPRAZOLE
     Dosage: 40 MILLIGRAM DAILY; 1?0?0?0
  6. CALCIUM [Concomitant]
     Active Substance: CALCIUM
     Dosage: 500 MILLIGRAM DAILY;   1?0?0?0
  7. METOBETA 50 [Concomitant]
     Dosage: 100 MILLIGRAM DAILY;  1?0?1?0
  8. METAMIZOL [Concomitant]
     Active Substance: METAMIZOLE SODIUM
     Dosage: 8 DOSAGE FORMS DAILY; 500 MG, 2?2?2?2,
  9. BRETARIS GENUAIR 322MIKROGRAMM [Concomitant]
     Dosage: 644 MICROGRAM DAILY; 1?0?1?0
     Route: 055
  10. LEVOTHYROXINE SODIUM. [Concomitant]
     Active Substance: LEVOTHYROXINE SODIUM
     Dosage: 75 MICROGRAM DAILY;   1?0?0?0
  11. ATORVASTATIN [Concomitant]
     Active Substance: ATORVASTATIN
     Dosage: 20 MILLIGRAM DAILY;   0?0?1?0
  12. FOLSAEURE [Concomitant]
     Active Substance: FOLIC ACID
     Dosage: 5 MG / WEEK, 1 X FRIDAY
  13. DEKRISTOL 20000 I.E. [Concomitant]
     Active Substance: CHOLECALCIFEROL
     Dosage: 20000 IU / WEEK, 1X
  14. ELIQUIS [Concomitant]
     Active Substance: APIXABAN
     Dosage: 5 MILLIGRAM DAILY;  1?0?1?0

REACTIONS (6)
  - Anaemia [Unknown]
  - Product prescribing error [Unknown]
  - Nausea [Unknown]
  - Decreased appetite [Unknown]
  - Weight decreased [Unknown]
  - Vomiting [Unknown]
